FAERS Safety Report 17710759 (Version 3)
Quarter: 2021Q4

REPORT INFORMATION
  Report Type: Spontaneous
  Country: US (occurrence: US)
  Receive Date: 20200427
  Receipt Date: 20211228
  Transmission Date: 20220303
  Serious: No
  Sender: FDA-Public Use
  Company Number: US-PFIZER INC-2020166628

PATIENT
  Age: 59 Year
  Sex: Female

DRUGS (2)
  1. LYRICA [Suspect]
     Active Substance: PREGABALIN
     Dosage: 150 MG
  2. ESTRING [Concomitant]
     Active Substance: ESTRADIOL
     Indication: Vulvovaginal pain
     Dosage: UNK

REACTIONS (1)
  - Pain [Not Recovered/Not Resolved]
